FAERS Safety Report 7793395-2 (Version None)
Quarter: 2011Q4

REPORT INFORMATION
  Report Type: 
  Country: None (occurrence: None)
  Receive Date: 20111003
  Receipt Date: 20110613
  Transmission Date: 20120403
  Serious: No
  Sender: FDA-Public Use
  Company Number: US-BAYER-2011-051389

PATIENT
  Sex: Female

DRUGS (5)
  1. AVELOX [Suspect]
     Indication: BRONCHITIS
     Dosage: 800 MG, QD
     Route: 048
     Dates: start: 20110401
  2. ANTIHYPERTENSIVES [Concomitant]
  3. CORTISONE ACETATE [Concomitant]
  4. AVELOX [Suspect]
     Indication: NASOPHARYNGITIS
  5. OTHER HYPNOTICS AND SEDATIVES [Concomitant]

REACTIONS (3)
  - ARTHRALGIA [None]
  - JOINT CREPITATION [None]
  - JOINT INSTABILITY [None]
